FAERS Safety Report 9068235 (Version 1)
Quarter: 2013Q1

REPORT INFORMATION
  Report Type: Spontaneous
  Country: FR (occurrence: FR)
  Receive Date: 20130206
  Receipt Date: 20130206
  Transmission Date: 20140127
  Serious: Yes (Hospitalization)
  Sender: FDA-Public Use
  Company Number: FR-ABBOTT-13P-056-1043854-00

PATIENT
  Age: 25 None
  Sex: Female

DRUGS (19)
  1. HUMIRA [Suspect]
     Indication: CROHN^S DISEASE
     Route: 058
     Dates: start: 201009, end: 201209
  2. HUMIRA [Suspect]
  3. HUMIRA [Suspect]
     Dates: end: 20110106
  4. HUMIRA [Suspect]
     Dates: start: 201107
  5. HUMIRA [Suspect]
  6. HUMIRA [Suspect]
  7. HUMIRA [Suspect]
     Dates: start: 20120801
  8. REMICADE [Suspect]
     Indication: PRODUCT USED FOR UNKNOWN INDICATION
     Dosage: 8 INFUSION
     Dates: start: 20091208, end: 20101025
  9. IMUREL [Suspect]
     Dates: start: 20110106
  10. IMUREL [Suspect]
     Dates: start: 20110201, end: 201107
  11. DIACOMIT [Concomitant]
     Indication: PRODUCT USED FOR UNKNOWN INDICATION
  12. MICROPAKINE [Concomitant]
     Indication: PRODUCT USED FOR UNKNOWN INDICATION
  13. MICROPAKINE [Concomitant]
     Dosage: INCREASED TO 1000-1250 MG/D
     Dates: start: 20110718
  14. MICROPAKINE [Concomitant]
     Dosage: 500 MG AM, 750 MG PM
     Dates: start: 20120321
  15. NORSET [Concomitant]
     Indication: PRODUCT USED FOR UNKNOWN INDICATION
  16. URBANYL [Concomitant]
     Indication: PRODUCT USED FOR UNKNOWN INDICATION
     Dosage: 10 MG AM, 15 MG PM
  17. XANAX [Concomitant]
     Indication: PRODUCT USED FOR UNKNOWN INDICATION
     Dosage: BEFORE SLEEPING
  18. AERIUS [Concomitant]
     Indication: PRODUCT USED FOR UNKNOWN INDICATION
  19. SINGULAIR [Concomitant]
     Indication: PRODUCT USED FOR UNKNOWN INDICATION

REACTIONS (17)
  - Keratitis [Recovered/Resolved]
  - Psoriasis [Recovered/Resolved]
  - Thrombocytopenia [Recovering/Resolving]
  - Dermatitis psoriasiform [Unknown]
  - Blood disorder [Unknown]
  - Anaemia [Unknown]
  - Convulsion [Unknown]
  - Crohn^s disease [Unknown]
  - Inflammatory bowel disease [Unknown]
  - Anaemia macrocytic [Unknown]
  - Leukopenia [Unknown]
  - General physical health deterioration [Unknown]
  - Liver disorder [Unknown]
  - Haemochromatosis [Unknown]
  - Pancytopenia [Unknown]
  - Macrocytosis [Unknown]
  - Iron overload [Unknown]
